FAERS Safety Report 20658578 (Version 1)
Quarter: 2022Q1

REPORT INFORMATION
  Report Type: Spontaneous
  Country: US (occurrence: US)
  Receive Date: 20220331
  Receipt Date: 20220331
  Transmission Date: 20220424
  Serious: Yes (Hospitalization)
  Sender: FDA-Public Use
  Company Number: US-GLAXOSMITHKLINE-US2022GSK055249

PATIENT
  Age: 20 Year
  Sex: Male

DRUGS (14)
  1. ROPINIROLE [Suspect]
     Active Substance: ROPINIROLE
     Indication: Visual impairment
     Dosage: 0.25 MG, TID
     Dates: start: 2018
  2. LAMOTRIGINE [Suspect]
     Active Substance: LAMOTRIGINE
     Indication: Illusion
     Dosage: 100 MG, BID
     Dates: start: 201804
  3. CLONAZEPAM [Suspect]
     Active Substance: CLONAZEPAM
     Indication: Visual impairment
     Dosage: 1 MG, QD
     Dates: start: 2018
  4. HALOPERIDOL [Concomitant]
     Active Substance: HALOPERIDOL
     Indication: Schizophrenia
     Dosage: UNK
  5. RISPERIDONE [Concomitant]
     Active Substance: RISPERIDONE
     Indication: Bipolar I disorder
     Dosage: UNK
  6. OLANZAPINE [Concomitant]
     Active Substance: OLANZAPINE
     Indication: Bipolar I disorder
     Dosage: UNK
  7. ASENAPINE [Concomitant]
     Active Substance: ASENAPINE
     Indication: Schizophrenia
     Dosage: UNK
  8. ARIPIPRAZOLE [Concomitant]
     Active Substance: ARIPIPRAZOLE
     Indication: Bipolar I disorder
     Dosage: UNK
  9. SERTRALINE [Concomitant]
     Active Substance: SERTRALINE HYDROCHLORIDE
     Indication: Major depression
     Dosage: UNK
  10. CITALOPRAM [Concomitant]
     Active Substance: CITALOPRAM HYDROBROMIDE
     Indication: Major depression
     Dosage: UNK
  11. DELSYM (DEXTROMETHORPHAN POLISITREX CONTROLLED RELEASE) [Concomitant]
     Indication: Product used for unknown indication
     Dosage: 300 MG, EVERY 2 TO 4 WEEKS
     Route: 048
     Dates: start: 201506
  12. DELSYM (DEXTROMETHORPHAN POLISITREX CONTROLLED RELEASE) [Concomitant]
     Dosage: 400 MG PER OCCASION
     Route: 048
  13. DELSYM (DEXTROMETHORPHAN POLISITREX CONTROLLED RELEASE) [Concomitant]
     Dosage: 400 MG BIMONTHLY
     Route: 048
  14. DELSYM (DEXTROMETHORPHAN POLISITREX CONTROLLED RELEASE) [Concomitant]
     Dosage: 400 MG MONTHLY
     Route: 048

REACTIONS (4)
  - Mania [Unknown]
  - Feeling abnormal [Unknown]
  - Treatment noncompliance [Unknown]
  - Drug ineffective [Unknown]
